FAERS Safety Report 6176498-8 (Version None)
Quarter: 2009Q2

REPORT INFORMATION
  Report Type: 
  Country: None (occurrence: None)
  Receive Date: 20090501
  Receipt Date: 20090423
  Transmission Date: 20091009
  Serious: Yes (Disabling, Other)
  Sender: FDA-Public Use
  Company Number: PHHY2009IT06055

PATIENT
  Sex: Female
  Weight: 58 kg

DRUGS (6)
  1. ACLASTA [Suspect]
     Indication: OSTEOPOROSIS POSTMENOPAUSAL
     Dosage: 5 MG, YEARLY
     Route: 042
     Dates: start: 20080222, end: 20080222
  2. ACLASTA [Suspect]
     Indication: SPINAL FRACTURE
  3. ACLASTA [Suspect]
     Indication: VARICES OESOPHAGEAL
  4. LASIX [Concomitant]
     Indication: HEPATIC CIRRHOSIS
     Dosage: 0.25 MG/DAY
     Route: 048
  5. LANSOX [Concomitant]
     Indication: HEPATIC CIRRHOSIS
     Dosage: 15 MG/DAY
     Route: 048
  6. ALDACTONE [Concomitant]
     Indication: HEPATIC CIRRHOSIS
     Dosage: 25 MG/DAY
     Route: 048

REACTIONS (3)
  - BONE DISORDER [None]
  - OSTEONECROSIS [None]
  - POOR PERSONAL HYGIENE [None]
